FAERS Safety Report 5099408-3 (Version None)
Quarter: 2006Q3

REPORT INFORMATION
  Report Type: 
  Country: None (occurrence: None)
  Receive Date: 20060906
  Receipt Date: 20050906
  Transmission Date: 20061208
  Serious: Yes (Hospitalization, Disabling)
  Sender: FDA-Public Use
  Company Number: ALMO2005041

PATIENT
  Age: 39 Year
  Sex: Female

DRUGS (1)
  1. AXERT [Suspect]
     Indication: MIGRAINE
     Dosage: 12.5 MG DAILY
     Dates: start: 20050724, end: 20050725

REACTIONS (5)
  - BLINDNESS TRANSIENT [None]
  - CEREBRAL ISCHAEMIA [None]
  - CEREBROVASCULAR SPASM [None]
  - CONDITION AGGRAVATED [None]
  - OCULAR VASCULAR DISORDER [None]
